FAERS Safety Report 19940523 (Version 1)
Quarter: 2021Q4

REPORT INFORMATION
  Report Type: Spontaneous
  Country: US (occurrence: US)
  Receive Date: 20211011
  Receipt Date: 20211011
  Transmission Date: 20220303
  Serious: No
  Sender: FDA-Public Use
  Company Number: US-PERRIGO-21US005031

PATIENT
  Age: 83 Year
  Sex: Female
  Weight: 83.9 kg

DRUGS (2)
  1. IMIQUIMOD [Suspect]
     Active Substance: IMIQUIMOD
     Indication: Rash
     Dosage: 12.5 MG, QOD
     Route: 061
     Dates: start: 202012, end: 20210403
  2. UNSPECIFIED INGREDIENT [Concomitant]
     Active Substance: UNSPECIFIED INGREDIENT
     Indication: Hypertension
     Dosage: UNK
     Route: 065
     Dates: start: 1991

REACTIONS (6)
  - Gait disturbance [Recovering/Resolving]
  - Sneezing [Unknown]
  - Nasal congestion [Unknown]
  - Nasopharyngitis [Unknown]
  - Fatigue [Recovered/Resolved]
  - Off label use [Recovered/Resolved]

NARRATIVE: CASE EVENT DATE: 20201201
